FAERS Safety Report 5366215-3 (Version None)
Quarter: 2007Q2

REPORT INFORMATION
  Report Type: 
  Country: None (occurrence: None)
  Receive Date: 20070619
  Receipt Date: 20070605
  Transmission Date: 20071010
  Serious: Yes (Death, Life-Threatening, Hospitalization, Disabling)
  Sender: FDA-Public Use
  Company Number: CLOF-10535

PATIENT
  Age: 77 Year
  Sex: Male
  Weight: 81.7 kg

DRUGS (10)
  1. CLOFARABINE (BLINDED) [Suspect]
     Indication: ACUTE MYELOID LEUKAEMIA
     Dosage: 40 MG/M2 QD X 5 IV
     Route: 042
     Dates: start: 20070503, end: 20070507
  2. CYTARABINE [Suspect]
     Indication: ACUTE MYELOID LEUKAEMIA
     Dosage: 1000 MG/M2 QD X 5 IV
     Route: 042
     Dates: start: 20070503, end: 20070507
  3. ENALAPRIL [Concomitant]
  4. PROSCAR [Concomitant]
  5. FUROSEMIDE [Concomitant]
  6. CRESTOR [Concomitant]
  7. COREG [Concomitant]
  8. PREVACID [Concomitant]
  9. POTASSIUM CHLORIDE [Concomitant]
  10. FLONASE [Concomitant]

REACTIONS (46)
  - ACIDOSIS [None]
  - ALANINE AMINOTRANSFERASE INCREASED [None]
  - ANAEMIA [None]
  - ASPARTATE AMINOTRANSFERASE INCREASED [None]
  - ATRIAL FIBRILLATION [None]
  - AZOTAEMIA [None]
  - BLOOD BILIRUBIN INCREASED [None]
  - BLOOD CULTURE POSITIVE [None]
  - BURNING SENSATION [None]
  - CEREBRAL HAEMATOMA [None]
  - COAGULOPATHY [None]
  - DECUBITUS ULCER [None]
  - DIALYSIS [None]
  - DIARRHOEA [None]
  - DYSPNOEA [None]
  - ENCEPHALOPATHY [None]
  - ENTEROCOCCAL INFECTION [None]
  - ERYTHEMA [None]
  - ERYTHROMELALGIA [None]
  - FATIGUE [None]
  - FLUSHING [None]
  - FUNGAL INFECTION [None]
  - HALLUCINATION [None]
  - HYPOTENSION [None]
  - INTERNATIONAL NORMALISED RATIO INCREASED [None]
  - LIVER FUNCTION TEST ABNORMAL [None]
  - MULTI-ORGAN FAILURE [None]
  - MYALGIA [None]
  - OCULAR ICTERUS [None]
  - OEDEMA [None]
  - OEDEMA PERIPHERAL [None]
  - OLIGURIA [None]
  - PANCYTOPENIA [None]
  - PNEUMONIA [None]
  - PROTEINURIA [None]
  - RASH PAPULAR [None]
  - RENAL FAILURE ACUTE [None]
  - RENAL IMPAIRMENT [None]
  - SKIN DISORDER [None]
  - SKIN EXFOLIATION [None]
  - SUBARACHNOID HAEMORRHAGE [None]
  - TACHYCARDIA [None]
  - TENDERNESS [None]
  - TREMOR [None]
  - URINARY RETENTION [None]
  - URINE PHOSPHATE INCREASED [None]
